FAERS Safety Report 7961769-2 (Version None)
Quarter: 2011Q4

REPORT INFORMATION
  Report Type: 
  Country: None (occurrence: None)
  Receive Date: 20111121
  Receipt Date: 20110811
  Transmission Date: 20120403
  Serious: No
  Sender: FDA-Public Use
  Company Number: 1000022828

PATIENT
  Age: 50 Year
  Sex: Female

DRUGS (3)
  1. VIIBRYD [Suspect]
     Indication: DEPRESSION
     Dosage: 10 MG (10 MG, 1 IN 1 D), ORAL
     Route: 048
     Dates: start: 20110810
  2. CYTOMEL [Concomitant]
  3. XANAX [Concomitant]

REACTIONS (2)
  - NAUSEA [None]
  - DIARRHOEA [None]
